FAERS Safety Report 24276456 (Version 1)
Quarter: 2024Q3

REPORT INFORMATION
  Report Type: Report from Study
  Country: CA (occurrence: CA)
  Receive Date: 20240903
  Receipt Date: 20240903
  Transmission Date: 20241017
  Serious: Yes (Hospitalization, Other)
  Sender: NOVARTIS
  Company Number: CA-002147023-NVSC2024CA115641

PATIENT
  Age: 63 Year
  Sex: Female

DRUGS (2)
  1. KISQALI [Suspect]
     Active Substance: RIBOCICLIB
     Indication: Breast cancer metastatic
     Dosage: 600 MG
     Route: 048
     Dates: start: 20240529
  2. KISQALI [Suspect]
     Active Substance: RIBOCICLIB
     Dosage: 600 MG, QD
     Route: 048
     Dates: start: 20240702

REACTIONS (6)
  - Nephrolithiasis [Unknown]
  - Post procedural infection [Unknown]
  - Chest pain [Recovering/Resolving]
  - Feeling cold [Recovered/Resolved]
  - White blood cell count decreased [Unknown]
  - Hepatic enzyme increased [Unknown]
